FAERS Safety Report 11889302 (Version 1)
Quarter: 2016Q1

REPORT INFORMATION
  Report Type: Spontaneous
  Country: US (occurrence: None)
  Receive Date: 20160104
  Receipt Date: 20160104
  Transmission Date: 20160526
  Serious: No
  Sender: FDA-Public Use
  Company Number: None

PATIENT
  Age: 54 Year
  Sex: Female
  Weight: 81.19 kg

DRUGS (2)
  1. VIEKIRA PAK [Suspect]
     Active Substance: DASABUVIR\OMBITASVIR\PARITAPREVIR\RITONAVIR
     Indication: HEPATITIS C
     Dosage: 1 PACK QD ORAL
     Route: 048
     Dates: start: 20151221, end: 20151231
  2. RIBAVIRAN 200 MG [Suspect]
     Active Substance: RIBAVIRIN
     Indication: HEPATITIS C
     Dosage: 3 PILLS BID ORAL
     Route: 048
     Dates: start: 20151221, end: 20151231

REACTIONS (3)
  - Thinking abnormal [None]
  - Hallucination [None]
  - Peripheral swelling [None]

NARRATIVE: CASE EVENT DATE: 20151231
